FAERS Safety Report 9255628 (Version 2)
Quarter: 2013Q2

REPORT INFORMATION
  Report Type: Spontaneous
  Country: JP (occurrence: JP)
  Receive Date: 20130425
  Receipt Date: 20130521
  Transmission Date: 20140414
  Serious: Yes (Other)
  Sender: FDA-Public Use
  Company Number: JP-GLAXOSMITHKLINE-B0885477A

PATIENT
  Age: 69 Year
  Sex: Female

DRUGS (11)
  1. LAMICTAL [Suspect]
     Indication: BIPOLAR DISORDER
     Dosage: 25MG PER DAY
     Route: 048
     Dates: start: 20120331, end: 20120620
  2. LAMICTAL [Suspect]
     Indication: BIPOLAR DISORDER
     Route: 048
     Dates: start: 20120621, end: 20130304
  3. LAMICTAL [Suspect]
     Indication: BIPOLAR DISORDER
     Dosage: 25MG PER DAY
     Route: 048
     Dates: start: 20130305, end: 20130311
  4. LAMICTAL [Suspect]
     Indication: BIPOLAR DISORDER
     Dosage: 5MG PER DAY
     Route: 048
     Dates: start: 20130312, end: 20130409
  5. LAMICTAL [Suspect]
     Indication: EPILEPSY
     Dosage: 25MG ALTERNATE DAYS
     Route: 048
     Dates: start: 20130410, end: 20130415
  6. EDIROL [Suspect]
     Indication: OSTEOPOROSIS
     Route: 048
  7. AMOXAN [Concomitant]
     Route: 048
  8. MYSLEE [Concomitant]
     Route: 048
  9. LENDORMIN [Concomitant]
     Route: 048
  10. ALPRAZOLAM [Concomitant]
     Route: 048
  11. MAGLAX [Concomitant]
     Route: 048

REACTIONS (1)
  - Renal disorder [Recovered/Resolved]
